FAERS Safety Report 4569598-7 (Version None)
Quarter: 2005Q1

REPORT INFORMATION
  Report Type: 
  Country: None (occurrence: None)
  Receive Date: 20050201
  Receipt Date: 20050125
  Transmission Date: 20050727
  Serious: No
  Sender: FDA-Public Use
  Company Number: 2005SE00493

PATIENT
  Age: 35 Year
  Sex: Female

DRUGS (7)
  1. SEROQUEL [Suspect]
     Indication: DEPRESSION
     Dosage: 300 MG DAILY PO
     Route: 048
     Dates: start: 20040201, end: 20040301
  2. SEROQUEL [Suspect]
     Indication: MENTAL DISORDER
     Dosage: 300 MG DAILY PO
     Route: 048
     Dates: start: 20040201, end: 20040301
  3. SEROQUEL [Suspect]
     Indication: SCHIZOPHRENIA
     Dosage: 300 MG DAILY PO
     Route: 048
     Dates: start: 20040201, end: 20040301
  4. KLOMIPRAMIN [Concomitant]
  5. PROPAVAN [Concomitant]
  6. STILNOCT [Concomitant]
  7. FLUANXOL [Concomitant]

REACTIONS (4)
  - APATHY [None]
  - CEREBRAL HAEMORRHAGE [None]
  - FATIGUE [None]
  - MUSCLE SPASMS [None]
